FAERS Safety Report 6719447-3 (Version None)
Quarter: 2010Q2

REPORT INFORMATION
  Report Type: 
  Country: None (occurrence: None)
  Receive Date: 20100511
  Receipt Date: 20100503
  Transmission Date: 20101027
  Serious: Yes (Other)
  Sender: FDA-Public Use
  Company Number: US-BAXTER-2009BH019652

PATIENT
  Age: 47 Year
  Sex: Female

DRUGS (8)
  1. GAMMAGARD LIQUID [Suspect]
     Indication: PRIMARY IMMUNODEFICIENCY SYNDROME
     Route: 042
     Dates: start: 20090929, end: 20090929
  2. HERBAL PREPARATION [Concomitant]
  3. ACETAMINOPHEN [Concomitant]
     Indication: PREMEDICATION
     Route: 048
  4. DIPHENHYDRAMINE [Concomitant]
     Indication: PREMEDICATION
     Route: 048
  5. NORCO [Concomitant]
     Indication: PAIN
     Route: 048
  6. VALTREX [Concomitant]
     Indication: VIRAL INFECTION
     Route: 048
  7. VITAMIN D [Concomitant]
     Indication: VITAMIN SUPPLEMENTATION
     Route: 048
  8. PLANT ALKALOIDS AND OTHER NATURAL PRODUCTS [Concomitant]
     Indication: PHYTOTHERAPY
     Route: 048

REACTIONS (4)
  - DYSPHAGIA [None]
  - HYPERSENSITIVITY [None]
  - LIP SWELLING [None]
  - OEDEMA PERIPHERAL [None]
